FAERS Safety Report 25201841 (Version 2)
Quarter: 2025Q3

REPORT INFORMATION
  Report Type: Report from Study
  Country: TW (occurrence: TW)
  Receive Date: 20250416
  Receipt Date: 20250809
  Transmission Date: 20251020
  Serious: Yes (Hospitalization)
  Sender: ALEXION PHARMACEUTICALS
  Company Number: TW-AstraZeneca-CH-00845289A

PATIENT
  Sex: Male

DRUGS (1)
  1. DURVALUMAB [Suspect]
     Active Substance: DURVALUMAB
     Dosage: 480 MILLIGRAM, Q2W
     Dates: start: 20241202

REACTIONS (6)
  - Dysstasia [Unknown]
  - General physical health deterioration [Unknown]
  - Ascites [Unknown]
  - Metabolic disorder [Unknown]
  - Jaundice [Unknown]
  - Renal impairment [Unknown]
